FAERS Safety Report 24956155 (Version 1)
Quarter: 2025Q1

REPORT INFORMATION
  Report Type: Spontaneous
  Country: TR (occurrence: TR)
  Receive Date: 20250211
  Receipt Date: 20250211
  Transmission Date: 20250408
  Serious: Yes (Other)
  Sender: BAUSCH AND LOMB
  Company Number: TR-MLMSERVICE-20250129-PI375938-00117-1

PATIENT
  Age: 21 Year
  Sex: Male

DRUGS (30)
  1. DEXAMETHASONE [Suspect]
     Active Substance: DEXAMETHASONE
     Indication: Precursor T-lymphoblastic leukaemia acute
     Dosage: RECEIVED 2 CYCLES
     Route: 065
  2. DARATUMUMAB [Suspect]
     Active Substance: DARATUMUMAB
     Indication: Precursor T-lymphoblastic leukaemia acute
     Route: 042
  3. DARATUMUMAB [Suspect]
     Active Substance: DARATUMUMAB
     Indication: Disease progression
  4. VENETOCLAX [Suspect]
     Active Substance: VENETOCLAX
     Indication: Precursor T-lymphoblastic leukaemia acute
     Route: 065
  5. VENETOCLAX [Suspect]
     Active Substance: VENETOCLAX
     Indication: Disease progression
  6. AZACITIDINE [Suspect]
     Active Substance: AZACITIDINE
     Indication: Precursor T-lymphoblastic leukaemia acute
     Route: 065
  7. AZACITIDINE [Suspect]
     Active Substance: AZACITIDINE
     Indication: Disease progression
  8. MICAFUNGIN [Concomitant]
     Active Substance: MICAFUNGIN SODIUM
     Indication: Antifungal prophylaxis
  9. NELARABINE [Concomitant]
     Active Substance: NELARABINE
     Indication: Precursor T-lymphoblastic leukaemia acute
     Dates: start: 2023
  10. NELARABINE [Concomitant]
     Active Substance: NELARABINE
     Indication: Acute lymphocytic leukaemia recurrent
  11. FLUDARABINE [Concomitant]
     Active Substance: FLUDARABINE PHOSPHATE
     Indication: Precursor T-lymphoblastic leukaemia acute
     Dates: start: 2023
  12. FLUDARABINE [Concomitant]
     Active Substance: FLUDARABINE PHOSPHATE
     Indication: Acute lymphocytic leukaemia recurrent
  13. ETOPOSIDE [Concomitant]
     Active Substance: ETOPOSIDE
     Indication: Precursor T-lymphoblastic leukaemia acute
     Dates: start: 2023
  14. ETOPOSIDE [Concomitant]
     Active Substance: ETOPOSIDE
     Indication: Acute lymphocytic leukaemia recurrent
  15. PEG/L-ASPARAGINASE [Concomitant]
     Active Substance: PEGASPARGASE
     Indication: Precursor T-lymphoblastic leukaemia acute
     Dates: start: 2023
  16. PEG/L-ASPARAGINASE [Concomitant]
     Active Substance: PEGASPARGASE
     Indication: Acute lymphocytic leukaemia recurrent
     Dates: start: 2023
  17. CYTARABINE [Concomitant]
     Active Substance: CYTARABINE
     Indication: Precursor T-lymphoblastic leukaemia acute
  18. CYTARABINE [Concomitant]
     Active Substance: CYTARABINE
     Indication: Acute lymphocytic leukaemia recurrent
  19. DAUNORUBICIN [Concomitant]
     Active Substance: DAUNORUBICIN
     Indication: Precursor T-lymphoblastic leukaemia acute
  20. DAUNORUBICIN [Concomitant]
     Active Substance: DAUNORUBICIN
     Indication: Acute lymphocytic leukaemia recurrent
  21. ASPARAGINASE [Concomitant]
     Active Substance: ASPARAGINASE
     Indication: Precursor T-lymphoblastic leukaemia acute
  22. ASPARAGINASE [Concomitant]
     Active Substance: ASPARAGINASE
     Indication: Acute lymphocytic leukaemia recurrent
  23. MERCAPTOPURINE [Concomitant]
     Active Substance: MERCAPTOPURINE
     Indication: Precursor T-lymphoblastic leukaemia acute
  24. MERCAPTOPURINE [Concomitant]
     Active Substance: MERCAPTOPURINE
     Indication: Acute lymphocytic leukaemia recurrent
  25. METHOTREXATE [Concomitant]
     Active Substance: METHOTREXATE
     Indication: Precursor T-lymphoblastic leukaemia acute
  26. METHOTREXATE [Concomitant]
     Active Substance: METHOTREXATE
     Indication: Acute lymphocytic leukaemia recurrent
  27. VINCRISTINE [Concomitant]
     Active Substance: VINCRISTINE
     Indication: Precursor T-lymphoblastic leukaemia acute
  28. VINCRISTINE [Concomitant]
     Active Substance: VINCRISTINE
     Indication: Acute lymphocytic leukaemia recurrent
  29. DEXAMETHASONE [Concomitant]
     Active Substance: DEXAMETHASONE
     Indication: Precursor T-lymphoblastic leukaemia acute
  30. DEXAMETHASONE [Concomitant]
     Active Substance: DEXAMETHASONE
     Indication: Acute lymphocytic leukaemia recurrent

REACTIONS (5)
  - Neutropenia [Unknown]
  - Febrile neutropenia [Unknown]
  - Bronchopulmonary aspergillosis [Unknown]
  - Haemophilus infection [Unknown]
  - Bacterial sepsis [Unknown]
